FAERS Safety Report 9642834 (Version 1)
Quarter: 2013Q4

REPORT INFORMATION
  Report Type: Report from Study
  Country: FR (occurrence: FR)
  Receive Date: 20131024
  Receipt Date: 20131024
  Transmission Date: 20140711
  Serious: Yes (Hospitalization)
  Sender: FDA-Public Use
  Company Number: PHHY2013FR117588

PATIENT
  Age: 52 Year
  Sex: Male

DRUGS (21)
  1. EVEROLIMUS [Suspect]
     Indication: RENAL CELL CARCINOMA
     Dosage: 10 MG, QD
     Route: 048
     Dates: start: 20130905, end: 20130920
  2. SODIUM CHLORIDE [Concomitant]
  3. PARACETAMOL [Concomitant]
  4. AMOXICILLIN [Concomitant]
  5. METHYLPREDNISOLONE [Concomitant]
  6. CIPROFLOXACIN [Concomitant]
  7. PAMIDRONATE DISODIUM [Concomitant]
  8. STAGID [Concomitant]
  9. INNOHEP [Concomitant]
     Dosage: UNK
  10. PRIMPERAN [Concomitant]
  11. NEFOPAM HYDROCHLORIDE [Concomitant]
  12. LYRICA [Concomitant]
  13. FRESUBIN [Concomitant]
  14. CALCIPARINE [Concomitant]
  15. SMECTA [Concomitant]
  16. FUNGIZONE [Concomitant]
  17. SODIUM BICARBONATE [Concomitant]
  18. PANTOPRAZOLE SODIUM [Concomitant]
  19. LEVOTHYROX [Concomitant]
  20. XYLOCAINE [Concomitant]
  21. HUMALOG [Concomitant]

REACTIONS (8)
  - Confusional state [Not Recovered/Not Resolved]
  - Dyspnoea [Not Recovered/Not Resolved]
  - Mucosal inflammation [Not Recovered/Not Resolved]
  - Hypothermia [Unknown]
  - Metabolic disorder [Unknown]
  - Pyrexia [Unknown]
  - Renal disorder [Unknown]
  - Hypertension [Unknown]
